FAERS Safety Report 13336358 (Version 1)
Quarter: 2017Q1

REPORT INFORMATION
  Report Type: Spontaneous
  Country: US (occurrence: US)
  Receive Date: 20170314
  Receipt Date: 20170314
  Transmission Date: 20170428
  Serious: No
  Sender: FDA-Public Use
  Company Number: US-JAZZ-2016-US-019534

PATIENT
  Sex: Female

DRUGS (44)
  1. FLUTICASONE PROPIONATE. [Concomitant]
     Active Substance: FLUTICASONE PROPIONATE
  2. ALBUTEROL SULFATE. [Concomitant]
     Active Substance: ALBUTEROL SULFATE
  3. FLOVENT HFA [Concomitant]
     Active Substance: FLUTICASONE PROPIONATE
  4. COENZYME Q10 [Concomitant]
     Active Substance: UBIDECARENONE
  5. FLEXERIL [Concomitant]
     Active Substance: CYCLOBENZAPRINE HYDROCHLORIDE
  6. ZOFRAN [Concomitant]
     Active Substance: ONDANSETRON HYDROCHLORIDE
  7. VITAMIN B12 [Concomitant]
     Active Substance: CYANOCOBALAMIN
  8. DILTIAZEM. [Concomitant]
     Active Substance: DILTIAZEM
  9. HYLAND^S RESTFUL LEGS [Concomitant]
     Active Substance: HOMEOPATHICS
  10. FLONASE                            /00908302/ [Concomitant]
     Active Substance: MOMETASONE FUROATE
  11. SEROQUEL [Concomitant]
     Active Substance: QUETIAPINE FUMARATE
  12. TOPAMAX [Concomitant]
     Active Substance: TOPIRAMATE
  13. XANAX [Concomitant]
     Active Substance: ALPRAZOLAM
  14. XYREM [Suspect]
     Active Substance: SODIUM OXYBATE
     Indication: NARCOLEPSY
     Dosage: 2.25 G, BID
     Route: 048
     Dates: start: 201507, end: 201507
  15. CALCIUM [Concomitant]
     Active Substance: CALCIUM
  16. VITAMIN B COMPLEX [Concomitant]
     Active Substance: CYANOCOBALAMIN\DEXPANTHENOL\NIACINAMIDE\PYRIDOXINE HYDROCHLORIDE\RIBOFLAVIN 5^-PHOSPHATE SODIUM\THIAMINE HYDROCHLORIDE\VITAMIN B COMPLEX
  17. INDOMETHACIN                       /00003801/ [Concomitant]
     Active Substance: INDOMETHACIN
  18. AMBIEN [Concomitant]
     Active Substance: ZOLPIDEM TARTRATE
  19. KETOROLAC [Concomitant]
     Active Substance: KETOROLAC\KETOROLAC TROMETHAMINE
  20. MIGRELIEF [Concomitant]
  21. EFFEXOR [Suspect]
     Active Substance: VENLAFAXINE HYDROCHLORIDE
     Indication: PRODUCT USED FOR UNKNOWN INDICATION
  22. PETADOLEX [Concomitant]
  23. FISH OIL [Concomitant]
     Active Substance: FISH OIL
  24. LYRICA [Concomitant]
     Active Substance: PREGABALIN
  25. XYREM [Suspect]
     Active Substance: SODIUM OXYBATE
     Indication: CATAPLEXY
     Dosage: DOSE ADJUSTMENTS
     Route: 048
     Dates: start: 201507, end: 201610
  26. XYREM [Suspect]
     Active Substance: SODIUM OXYBATE
     Dosage: 4.5 G, BID
     Route: 048
     Dates: start: 201610
  27. MELATONIN [Concomitant]
     Active Substance: MELATONIN
  28. MULTIVITAMINS                      /00116001/ [Concomitant]
  29. NUVIGIL [Concomitant]
     Active Substance: ARMODAFINIL
  30. PHENERGAN [Concomitant]
     Active Substance: PROMETHAZINE HYDROCHLORIDE
  31. PREMARIN [Concomitant]
     Active Substance: ESTROGENS, CONJUGATED
  32. ZYRTEC [Concomitant]
     Active Substance: CETIRIZINE HYDROCHLORIDE
  33. CELEXA [Suspect]
     Active Substance: CITALOPRAM HYDROBROMIDE
     Indication: PRODUCT USED FOR UNKNOWN INDICATION
     Dosage: UNK
  34. ADDERALL [Concomitant]
     Active Substance: AMPHETAMINE ASPARTATE\AMPHETAMINE SULFATE\DEXTROAMPHETAMINE SACCHARATE\DEXTROAMPHETAMINE SULFATE
  35. CITALOPRAM [Concomitant]
     Active Substance: CITALOPRAM HYDROBROMIDE
  36. BIOTIN [Concomitant]
     Active Substance: BIOTIN
  37. BENADRYL ALLERGY [Concomitant]
     Active Substance: DIPHENHYDRAMINE HYDROCHLORIDE
  38. EXCEDRIN MIGRAINE [Concomitant]
     Active Substance: ACETAMINOPHEN\ASPIRIN\CAFFEINE
  39. FIORICET [Concomitant]
     Active Substance: ACETAMINOPHEN\BUTALBITAL\CAFFEINE
  40. IBUPROFEN. [Concomitant]
     Active Substance: IBUPROFEN
  41. TYLENOL EXTRA STRENGTH [Concomitant]
     Active Substance: ACETAMINOPHEN
  42. REQUIP [Concomitant]
     Active Substance: ROPINIROLE HYDROCHLORIDE
  43. NAPROXEN. [Concomitant]
     Active Substance: NAPROXEN
  44. LEVOTHYROXINE. [Concomitant]
     Active Substance: LEVOTHYROXINE

REACTIONS (4)
  - Personality change [Unknown]
  - Drug effect incomplete [Unknown]
  - Poor quality sleep [Unknown]
  - Inappropriate schedule of drug administration [Unknown]
